FAERS Safety Report 22278353 (Version 2)
Quarter: 2023Q2

REPORT INFORMATION
  Report Type: Spontaneous
  Country: US (occurrence: US)
  Receive Date: 20230503
  Receipt Date: 20230519
  Transmission Date: 20230721
  Serious: No
  Sender: FDA-Public Use
  Company Number: US-LEO Pharma-351574

PATIENT
  Sex: Female

DRUGS (5)
  1. DEVICE [Suspect]
     Active Substance: DEVICE
     Indication: Eczema
  2. DEVICE [Suspect]
     Active Substance: DEVICE
     Indication: Eczema
  3. DEVICE [Suspect]
     Active Substance: DEVICE
     Indication: Eczema
  4. DEVICE [Suspect]
     Active Substance: DEVICE
     Indication: Eczema
  5. ADBRY [Suspect]
     Active Substance: TRALOKINUMAB-LDRM
     Indication: Eczema
     Route: 058

REACTIONS (3)
  - Syncope [Unknown]
  - Injection site pain [Unknown]
  - Dermatitis atopic [Unknown]
